FAERS Safety Report 16906971 (Version 1)
Quarter: 2019Q4

REPORT INFORMATION
  Report Type: Spontaneous
  Country: FR (occurrence: FR)
  Receive Date: 20191011
  Receipt Date: 20191011
  Transmission Date: 20200122
  Serious: Yes (Other)
  Sender: FDA-Public Use
  Company Number: FR-ACCORD-156998

PATIENT
  Age: 59 Year
  Sex: Male

DRUGS (3)
  1. CHLORHYDRATE DE GEMCITABINE [Suspect]
     Active Substance: GEMCITABINE
     Indication: LUNG ADENOCARCINOMA
     Route: 042
     Dates: start: 20190802, end: 20190830
  2. GEMCITABINE/GEMCITABINE HYDROCHLORIDE [Suspect]
     Active Substance: GEMCITABINE\GEMCITABINE HYDROCHLORIDE
     Indication: LUNG ADENOCARCINOMA
     Dosage: 1000 MG
     Route: 042
     Dates: start: 20190329, end: 20190719
  3. CARBOPLATIN. [Concomitant]
     Active Substance: CARBOPLATIN
     Indication: LUNG ADENOCARCINOMA
     Route: 042
     Dates: start: 20190329, end: 20190719

REACTIONS (1)
  - Colitis [Recovering/Resolving]

NARRATIVE: CASE EVENT DATE: 20190802
